FAERS Safety Report 11173763 (Version 1)
Quarter: 2015Q2

REPORT INFORMATION
  Report Type: Spontaneous
  Country: US (occurrence: None)
  Receive Date: 20150608
  Receipt Date: 20150608
  Transmission Date: 20150821
  Serious: Yes (Hospitalization)
  Sender: FDA-Public Use
  Company Number: None

PATIENT
  Age: 73 Year
  Sex: Male
  Weight: 131 kg

DRUGS (17)
  1. COENZYME Q10 [Concomitant]
     Active Substance: UBIDECARENONE
  2. IMDUR [Concomitant]
     Active Substance: ISOSORBIDE MONONITRATE
  3. ALLOPURINOL. [Concomitant]
     Active Substance: ALLOPURINOL
  4. ASCORBIC ACID. [Concomitant]
     Active Substance: ASCORBIC ACID
  5. ATENOLOL. [Concomitant]
     Active Substance: ATENOLOL
  6. HYDROCHLOROTHIAZIDE. [Concomitant]
     Active Substance: HYDROCHLOROTHIAZIDE
  7. MULTI VITAMIN [Concomitant]
     Active Substance: VITAMINS
  8. VITAMIN D [Concomitant]
     Active Substance: CHOLECALCIFEROL
  9. ELIQUIS [Suspect]
     Active Substance: APIXABAN
     Indication: ATRIAL FIBRILLATION
     Dosage: 1 TABLET
     Route: 048
  10. FUROSEMIDE. [Concomitant]
     Active Substance: FUROSEMIDE
  11. ASPIRIN. [Concomitant]
     Active Substance: ASPIRIN
  12. CINNAMON. [Concomitant]
     Active Substance: CINNAMON
  13. VITAMIN B12 [Concomitant]
     Active Substance: CYANOCOBALAMIN
  14. AMIODARONE [Concomitant]
     Active Substance: AMIODARONE
  15. ENALAPRIL [Concomitant]
     Active Substance: ENALAPRIL
  16. TAMSULOSIN [Concomitant]
     Active Substance: TAMSULOSIN
  17. DUTASTERIDE. [Concomitant]
     Active Substance: DUTASTERIDE

REACTIONS (2)
  - Gastritis [None]
  - Melaena [None]

NARRATIVE: CASE EVENT DATE: 20150522
